FAERS Safety Report 6840975-4 (Version None)
Quarter: 2010Q3

REPORT INFORMATION
  Report Type: 
  Country: None (occurrence: None)
  Receive Date: 20100714
  Receipt Date: 20070618
  Transmission Date: 20110219
  Serious: No
  Sender: FDA-Public Use
  Company Number: US-PFIZER INC-2007051748

PATIENT
  Sex: Female

DRUGS (5)
  1. CHANTIX [Suspect]
     Indication: SMOKING CESSATION THERAPY
     Dates: start: 20070613
  2. MONTELUKAST SODIUM [Concomitant]
  3. VITAMINS [Concomitant]
  4. FISH OIL [Concomitant]
  5. CALCIUM [Concomitant]

REACTIONS (1)
  - INSOMNIA [None]
